FAERS Safety Report 5797312-6 (Version None)
Quarter: 2008Q2

REPORT INFORMATION
  Report Type: 
  Country: None (occurrence: None)
  Receive Date: 20080627
  Receipt Date: 20080623
  Transmission Date: 20081010
  Serious: Yes (Death)
  Sender: FDA-Public Use
  Company Number: 2008-179597-NL

PATIENT
  Age: 63 Year
  Sex: Male

DRUGS (10)
  1. VECURONIUM BROMIDE [Suspect]
     Indication: ANAESTHESIA PROCEDURE
     Dosage: 10 MG ONCE INTRAVENOUS (NOS)
     Route: 042
     Dates: start: 20080109, end: 20080109
  2. FENTANYL [Suspect]
     Indication: ANAESTHESIA PROCEDURE
     Dosage: 150 MG ONCE INTRAVENOUS (NOS)
     Route: 042
     Dates: start: 20080109
  3. PROPOFOL [Suspect]
     Indication: ANAESTHESIA PROCEDURE
     Dosage: 200 MG ONCE INTRAVENOUS (NOS)
     Route: 042
     Dates: start: 20080109
  4. BUPIVACAINE [Suspect]
     Indication: ANAESTHESIA PROCEDURE
     Dosage: EPIDURAL
     Route: 008
     Dates: start: 20080109
  5. CANDESARTAN CILEXETIL [Concomitant]
  6. GOSERELIN [Concomitant]
  7. METOPROLOL SUCCINATE [Concomitant]
  8. BICALUTAMIDE [Concomitant]
  9. OXAZEPAM [Concomitant]
  10. LIDOCAINE [Concomitant]

REACTIONS (2)
  - ANAPHYLACTIC REACTION [None]
  - TRYPTASE INCREASED [None]
